FAERS Safety Report 4520741-5 (Version None)
Quarter: 2004Q4

REPORT INFORMATION
  Report Type: 
  Country: None (occurrence: None)
  Receive Date: 20041207
  Receipt Date: 20041126
  Transmission Date: 20050328
  Serious: Yes (Hospitalization)
  Sender: FDA-Public Use
  Company Number: SE-MERCK-0411SWE00058

PATIENT
  Age: 76 Year
  Sex: Female

DRUGS (7)
  1. COSOPT [Suspect]
     Indication: GLAUCOMA
     Route: 047
     Dates: end: 20040901
  2. CLOMIPRAMINE HCL [Suspect]
     Route: 048
     Dates: end: 20040901
  3. BIMATOPROST [Suspect]
     Indication: GLAUCOMA
     Route: 047
     Dates: end: 20040901
  4. BRIMONIDINE TARTRATE [Suspect]
     Indication: GLAUCOMA
     Route: 047
     Dates: end: 20040901
  5. ACETAZOLAMIDE [Concomitant]
     Route: 048
  6. ATENOLOL [Concomitant]
     Route: 048
  7. LEVOTHYROXINE SODIUM [Concomitant]
     Route: 065

REACTIONS (2)
  - ATRIAL FIBRILLATION [None]
  - EXTRASYSTOLES [None]
